FAERS Safety Report 14913654 (Version 2)
Quarter: 2018Q4

REPORT INFORMATION
  Report Type: Spontaneous
  Country: US (occurrence: US)
  Receive Date: 20180518
  Receipt Date: 20181108
  Transmission Date: 20190204
  Serious: No
  Sender: FDA-Public Use
  Company Number: US-ASTRAZENECA-2018SE53713

PATIENT
  Age: 27172 Day
  Sex: Female
  Weight: 86.2 kg

DRUGS (4)
  1. BYDUREON BCISE [Suspect]
     Active Substance: EXENATIDE
     Route: 058
     Dates: start: 20181007
  2. HUMULIN NOS [Concomitant]
     Active Substance: INSULIN HUMAN
     Dosage: INSULIN SQ 20 UNITS IN THE MORNING
     Route: 058
  3. BYDUREON [Suspect]
     Active Substance: EXENATIDE
     Indication: TYPE 2 DIABETES MELLITUS
     Dosage: ONCE A WEEK
     Route: 058
     Dates: start: 201803
  4. LANTUS [Concomitant]
     Active Substance: INSULIN GLARGINE
     Dosage: INSULIN 60 UNITS SQ AT NIGHTS

REACTIONS (8)
  - Drug ineffective [Not Recovered/Not Resolved]
  - Intentional device misuse [Unknown]
  - Product label issue [Unknown]
  - Decreased appetite [Not Recovered/Not Resolved]
  - Pain [Not Recovered/Not Resolved]
  - Headache [Not Recovered/Not Resolved]
  - Fall [Unknown]
  - Device leakage [Unknown]

NARRATIVE: CASE EVENT DATE: 20180418
